FAERS Safety Report 25031939 (Version 1)
Quarter: 2025Q1

REPORT INFORMATION
  Report Type: Other
  Country: SA (occurrence: SA)
  Receive Date: 20250303
  Receipt Date: 20250303
  Transmission Date: 20250409
  Serious: Yes (Hospitalization, Other)
  Sender: ZHEJIANG JINGXIN PHARMACEUTICAL
  Company Number: SA-Zhejiang Jingxin Pharmaceutical Co., Ltd-2172108

PATIENT
  Age: 77 Year
  Sex: Female

DRUGS (4)
  1. LEVETIRACETAM [Suspect]
     Active Substance: LEVETIRACETAM
     Indication: Seizure prophylaxis
  2. CARBIDOPA AND LEVODOPA [Concomitant]
     Active Substance: CARBIDOPA\LEVODOPA
  3. TICAGRELOR [Concomitant]
     Active Substance: TICAGRELOR
  4. ASPIRIN [Concomitant]
     Active Substance: ASPIRIN

REACTIONS (1)
  - Parkinson^s disease [Recovering/Resolving]
